FAERS Safety Report 9478247 (Version 2)
Quarter: 2013Q3

REPORT INFORMATION
  Report Type: Spontaneous
  Country: CA (occurrence: CA)
  Receive Date: 20130827
  Receipt Date: 20130827
  Transmission Date: 20140515
  Serious: Yes (Other)
  Sender: FDA-Public Use
  Company Number: CA-AMGEN-CANSP2013058526

PATIENT
  Age: 56 Year
  Sex: Male

DRUGS (1)
  1. SENSIPAR [Suspect]
     Indication: RENAL DISORDER
     Dosage: 120 MG, UNK
     Route: 065
     Dates: start: 20060201

REACTIONS (3)
  - Gastric ulcer [Recovering/Resolving]
  - Gastric polyps [Unknown]
  - Gastric disorder [Not Recovered/Not Resolved]
